FAERS Safety Report 18767943 (Version 8)
Quarter: 2022Q1

REPORT INFORMATION
  Report Type: Report from Study
  Country: ES (occurrence: None)
  Receive Date: 20210121
  Receipt Date: 20220113
  Transmission Date: 20220423
  Serious: Yes (Hospitalization)
  Sender: FDA-Public Use
  Company Number: ES-ROCHE-2750758

PATIENT
  Age: 52 Year
  Sex: Female
  Weight: 62.2 kg

DRUGS (14)
  1. MOSUNETUZUMAB [Suspect]
     Active Substance: MOSUNETUZUMAB
     Indication: Non-Hodgkin^s lymphoma
     Dosage: DATE OF MOST RECENT DOSE OF MOSUNETUZUMAB OF 1 MG PRIOR TO SAE ONSET: 12/JAN/2021
     Route: 042
     Dates: start: 20210112
  2. POLATUZUMAB VEDOTIN [Suspect]
     Active Substance: POLATUZUMAB VEDOTIN
     Indication: Non-Hodgkin^s lymphoma
     Dosage: DATE OF MOST RECENT DOSE OF POLATUZUMAB VEDOTIN OF 112 MG PRIOR TO SAE ONSET: 12/JAN/2021.
     Route: 042
     Dates: start: 20210112
  3. CYCLOPHOSPHAMIDE [Suspect]
     Active Substance: CYCLOPHOSPHAMIDE
     Indication: Non-Hodgkin^s lymphoma
     Dosage: DATE OF MOST RECENT DOSE OF CYCLOPHOSPHAMIDE OF 1230 MG PRIOR TO SAE ONSET: 12/JAN/2021.
     Route: 042
     Dates: start: 20210112
  4. DOXORUBICIN [Suspect]
     Active Substance: DOXORUBICIN
     Indication: Non-Hodgkin^s lymphoma
     Dosage: DATE OF MOST RECENT DOSE OF DOXORUBICIN OF 82 MG PRIOR TO SAE ONSET: 12/JAN/2021.
     Route: 042
     Dates: start: 20210112
  5. PREDNISONE [Suspect]
     Active Substance: PREDNISONE
     Indication: Non-Hodgkin^s lymphoma
     Dosage: DATE OF MOST RECENT DOSE OF PREDNISONE OF 100 MG PRIOR TO SAE ONSET: 12/JAN/2021.
     Route: 048
     Dates: start: 20210112
  6. ACETAMINOPHEN [Concomitant]
     Active Substance: ACETAMINOPHEN
     Indication: Prophylaxis
     Route: 042
     Dates: start: 20210205, end: 20210205
  7. ACETAMINOPHEN [Concomitant]
     Active Substance: ACETAMINOPHEN
     Route: 048
     Dates: start: 20210112, end: 20210112
  8. ACETAMINOPHEN [Concomitant]
     Active Substance: ACETAMINOPHEN
     Route: 048
     Dates: start: 20210112
  9. AMOXICILLIN [Concomitant]
     Active Substance: AMOXICILLIN
     Route: 048
     Dates: start: 20210205, end: 20210209
  10. DEXCHLORPHENIRAMINE [Concomitant]
     Active Substance: DEXCHLORPHENIRAMINE
     Indication: Prophylaxis
     Route: 042
     Dates: start: 20210112, end: 20210112
  11. ONDANSETRON [Concomitant]
     Active Substance: ONDANSETRON
     Indication: Prophylaxis
     Route: 042
     Dates: start: 20210112, end: 20210112
  12. ONDANSETRON [Concomitant]
     Active Substance: ONDANSETRON
     Route: 048
     Dates: start: 20210112, end: 20210622
  13. ALLOPURINOL [Concomitant]
     Active Substance: ALLOPURINOL
     Indication: Prophylaxis
     Route: 048
     Dates: start: 20210112, end: 20210622
  14. DICLOFENAC [Concomitant]
     Active Substance: DICLOFENAC
     Route: 048
     Dates: start: 20210112

REACTIONS (1)
  - Transaminases increased [Recovered/Resolved]

NARRATIVE: CASE EVENT DATE: 20210113
